FAERS Safety Report 8743241 (Version 5)
Quarter: 2012Q4

REPORT INFORMATION
  Report Type: 
  Country: GB (occurrence: GB)
  Receive Date: 20120824
  Receipt Date: 20121220
  Transmission Date: 20130627
  Serious: Yes (Other)
  Sender: FDA-Public Use
  Company Number: GB-GLAXOSMITHKLINE-B0823916A

PATIENT
  Age: 15 Year
  Sex: Female

DRUGS (4)
  1. LAMICTAL [Suspect]
     Indication: BIPOLAR DISORDER
     Dosage: 150MG Per day
     Route: 048
  2. CETIRIZINE [Suspect]
     Indication: SEASONAL ALLERGY
     Route: 048
  3. ABILIFY [Suspect]
     Indication: BIPOLAR DISORDER
     Route: 065
  4. NEXPLANON [Suspect]
     Indication: CONTRACEPTION
     Dosage: 68MG Unknown
     Route: 065

REACTIONS (6)
  - Abortion spontaneous [Unknown]
  - Unintended pregnancy [Recovered/Resolved]
  - Pregnancy with contraceptive device [Recovered/Resolved]
  - Exposure during pregnancy [Unknown]
  - Metrorrhagia [Unknown]
  - Drug interaction [Unknown]
